FAERS Safety Report 24768948 (Version 12)
Quarter: 2025Q3

REPORT INFORMATION
  Report Type: Spontaneous
  Country: EU (occurrence: EU)
  Receive Date: 20241224
  Receipt Date: 20250926
  Transmission Date: 20251020
  Serious: Yes (Hospitalization, Other)
  Sender: Haleon PLC
  Company Number: EU-USP-ICSR-2024-02-08-09-34-42-48-49-79-86-96-102-107-128-129- 132_128

PATIENT
  Age: 36 Year
  Sex: Female

DRUGS (98)
  1. DICLOFENAC [Suspect]
     Active Substance: DICLOFENAC
     Indication: Toothache
     Route: 050
  2. DICLOFENAC [Suspect]
     Active Substance: DICLOFENAC
     Indication: Toothache
  3. DICLOFENAC [Suspect]
     Active Substance: DICLOFENAC
     Route: 050
  4. DICLOFENAC [Suspect]
     Active Substance: DICLOFENAC
  5. DICLOFENAC [Suspect]
     Active Substance: DICLOFENAC
     Route: 050
  6. DICLOFENAC [Suspect]
     Active Substance: DICLOFENAC
  7. IBUPROFEN [Suspect]
     Active Substance: IBUPROFEN
     Indication: Toothache
     Route: 048
  8. IBUPROFEN [Suspect]
     Active Substance: IBUPROFEN
     Indication: Toothache
  9. ACETAMINOPHEN\CODEINE [Suspect]
     Active Substance: ACETAMINOPHEN\CODEINE
     Indication: Toothache
     Route: 065
  10. ACETAMINOPHEN\CODEINE [Suspect]
     Active Substance: ACETAMINOPHEN\CODEINE
     Indication: Toothache
  11. CHLORHEXIDINE [Suspect]
     Active Substance: CHLORHEXIDINE
     Indication: Toothache
     Route: 065
  12. CHLORHEXIDINE [Suspect]
     Active Substance: CHLORHEXIDINE
     Indication: Toothache
     Route: 065
  13. OXYCODONE [Concomitant]
     Active Substance: OXYCODONE
     Indication: Toothache
     Route: 050
  14. OXYCODONE [Concomitant]
     Active Substance: OXYCODONE
     Indication: Analgesic therapy
     Route: 065
  15. OXYCODONE [Concomitant]
     Active Substance: OXYCODONE
     Indication: Toothache
  16. DOXYLAMINE [Interacting]
     Active Substance: DOXYLAMINE
     Indication: Insomnia
     Dosage: 25 MG, QN (AT NIGHT)
     Route: 065
  17. DOXYLAMINE [Interacting]
     Active Substance: DOXYLAMINE
     Indication: Depression
     Route: 065
  18. DOXYLAMINE [Interacting]
     Active Substance: DOXYLAMINE
     Indication: Sleep disorder
  19. DOXYLAMINE [Interacting]
     Active Substance: DOXYLAMINE
     Indication: Insomnia
  20. DOXYLAMINE [Interacting]
     Active Substance: DOXYLAMINE
     Indication: Depression
  21. ACETAMINOPHEN [Suspect]
     Active Substance: ACETAMINOPHEN
     Indication: Toothache
     Route: 065
  22. ACETAMINOPHEN [Suspect]
     Active Substance: ACETAMINOPHEN
     Indication: Gingival pain
  23. LIDOCAINE [Suspect]
     Active Substance: LIDOCAINE
     Indication: Toothache
     Route: 065
  24. LIDOCAINE [Suspect]
     Active Substance: LIDOCAINE
  25. ESCITALOPRAM [Interacting]
     Active Substance: ESCITALOPRAM OXALATE
     Indication: Depression
     Dosage: 10 MG AT NIGHT
     Route: 065
  26. ESCITALOPRAM [Interacting]
     Active Substance: ESCITALOPRAM OXALATE
     Indication: Insomnia
  27. ESCITALOPRAM [Interacting]
     Active Substance: ESCITALOPRAM OXALATE
     Indication: Depression
  28. ESCITALOPRAM [Interacting]
     Active Substance: ESCITALOPRAM OXALATE
     Indication: Insomnia
  29. BUPRENORPHINE [Suspect]
     Active Substance: BUPRENORPHINE
     Indication: Toothache
     Route: 065
  30. BUPRENORPHINE [Suspect]
     Active Substance: BUPRENORPHINE
     Indication: Toothache
  31. BUPRENORPHINE [Suspect]
     Active Substance: BUPRENORPHINE
     Route: 050
  32. BUPRENORPHINE [Suspect]
     Active Substance: BUPRENORPHINE
  33. BUPRENORPHINE [Suspect]
     Active Substance: BUPRENORPHINE
     Route: 050
  34. BUPRENORPHINE [Suspect]
     Active Substance: BUPRENORPHINE
  35. BUPRENORPHINE [Suspect]
     Active Substance: BUPRENORPHINE
     Route: 050
  36. BUPRENORPHINE [Suspect]
     Active Substance: BUPRENORPHINE
  37. BUPRENORPHINE [Suspect]
     Active Substance: BUPRENORPHINE
     Route: 050
  38. BUPRENORPHINE [Suspect]
     Active Substance: BUPRENORPHINE
  39. DIAZEPAM [Suspect]
     Active Substance: DIAZEPAM
     Indication: Toothache
     Route: 065
  40. DIAZEPAM [Suspect]
     Active Substance: DIAZEPAM
     Indication: Toothache
  41. DIAZEPAM [Suspect]
     Active Substance: DIAZEPAM
     Route: 065
  42. DIAZEPAM [Suspect]
     Active Substance: DIAZEPAM
  43. AMOXICILLIN [Suspect]
     Active Substance: AMOXICILLIN
     Indication: Toothache
     Route: 065
  44. AMOXICILLIN [Suspect]
     Active Substance: AMOXICILLIN
     Indication: Toothache
  45. AMOXICILLIN [Suspect]
     Active Substance: AMOXICILLIN
     Route: 065
  46. AMOXICILLIN [Suspect]
     Active Substance: AMOXICILLIN
  47. CLINDAMYCIN [Suspect]
     Active Substance: CLINDAMYCIN
     Indication: Toothache
     Route: 065
  48. CLINDAMYCIN [Suspect]
     Active Substance: CLINDAMYCIN
     Indication: Toothache
  49. CLINDAMYCIN [Suspect]
     Active Substance: CLINDAMYCIN
     Route: 065
  50. CLINDAMYCIN [Suspect]
     Active Substance: CLINDAMYCIN
  51. BENZYDAMINE [Suspect]
     Active Substance: BENZYDAMINE
     Indication: Toothache
     Route: 065
  52. BENZYDAMINE [Suspect]
     Active Substance: BENZYDAMINE
     Indication: Toothache
  53. BENZYDAMINE [Suspect]
     Active Substance: BENZYDAMINE
     Route: 065
  54. BENZYDAMINE [Suspect]
     Active Substance: BENZYDAMINE
  55. BENZYDAMINE [Suspect]
     Active Substance: BENZYDAMINE
     Route: 065
  56. BENZYDAMINE [Suspect]
     Active Substance: BENZYDAMINE
  57. BENZYDAMINE [Suspect]
     Active Substance: BENZYDAMINE
     Route: 050
  58. FLURBIPROFEN [Suspect]
     Active Substance: FLURBIPROFEN
     Indication: Toothache
     Route: 050
  59. FLURBIPROFEN [Suspect]
     Active Substance: FLURBIPROFEN
     Indication: Toothache
  60. FLURBIPROFEN [Suspect]
     Active Substance: FLURBIPROFEN
     Route: 065
  61. FLURBIPROFEN [Suspect]
     Active Substance: FLURBIPROFEN
  62. METAMIZOLE [Suspect]
     Active Substance: METAMIZOLE
     Indication: Gingival pain
     Route: 065
  63. METAMIZOLE [Suspect]
     Active Substance: METAMIZOLE
     Indication: Toothache
  64. CHLORHEXIDINE [Suspect]
     Active Substance: CHLORHEXIDINE
     Indication: Toothache
  65. CHLORHEXIDINE [Suspect]
     Active Substance: CHLORHEXIDINE
  66. ESCITALOPRAM OXALATE [Suspect]
     Active Substance: ESCITALOPRAM OXALATE
     Indication: Depression
     Route: 065
  67. LIDOCAINE HYDROCHLORIDE [Suspect]
     Active Substance: LIDOCAINE HYDROCHLORIDE
     Indication: Toothache
     Route: 050
  68. LIDOCAINE HYDROCHLORIDE [Suspect]
     Active Substance: LIDOCAINE HYDROCHLORIDE
     Indication: Toothache
  69. LIDOCAINE HYDROCHLORIDE [Suspect]
     Active Substance: LIDOCAINE HYDROCHLORIDE
     Route: 050
  70. LIDOCAINE HYDROCHLORIDE [Suspect]
     Active Substance: LIDOCAINE HYDROCHLORIDE
  71. MORPHINE [Suspect]
     Active Substance: MORPHINE
     Indication: Toothache
     Route: 050
  72. MORPHINE [Suspect]
     Active Substance: MORPHINE
     Indication: Toothache
  73. MORPHINE [Suspect]
     Active Substance: MORPHINE
     Route: 050
  74. MORPHINE [Suspect]
     Active Substance: MORPHINE
  75. MORPHINE [Suspect]
     Active Substance: MORPHINE
     Route: 050
  76. MORPHINE [Suspect]
     Active Substance: MORPHINE
  77. METAMIZOLE [Concomitant]
     Active Substance: METAMIZOLE
     Indication: Gingival pain
     Route: 065
  78. METAMIZOLE [Concomitant]
     Active Substance: METAMIZOLE
     Indication: Toothache
  79. METAMIZOLE [Concomitant]
     Active Substance: METAMIZOLE
     Route: 065
  80. TRAZODONE [Suspect]
     Active Substance: TRAZODONE HYDROCHLORIDE
     Indication: Pain
     Route: 065
  81. CODEINE [Suspect]
     Active Substance: CODEINE
     Indication: Toothache
     Route: 065
  82. CODEINE [Suspect]
     Active Substance: CODEINE
  83. ETORICOXIB [Suspect]
     Active Substance: ETORICOXIB
     Indication: Pain
     Route: 065
  84. PREGABALIN [Suspect]
     Active Substance: PREGABALIN
     Indication: Product used for unknown indication
     Route: 065
  85. DULOXETINE [Suspect]
     Active Substance: DULOXETINE
     Indication: Pain
     Route: 065
  86. IPIDACRINE [Concomitant]
     Active Substance: IPIDACRINE
     Indication: Product used for unknown indication
     Route: 065
  87. IPIDACRINE [Concomitant]
     Active Substance: IPIDACRINE
     Route: 065
  88. IPIDACRINE [Concomitant]
     Active Substance: IPIDACRINE
     Route: 065
  89. IPIDACRINE [Concomitant]
     Active Substance: IPIDACRINE
     Route: 065
  90. KETOPROFEN [Concomitant]
     Active Substance: KETOPROFEN
     Indication: Toothache
     Route: 065
  91. KETOPROFEN [Concomitant]
     Active Substance: KETOPROFEN
     Indication: Product used for unknown indication
  92. KETOPROFEN [Concomitant]
     Active Substance: KETOPROFEN
     Route: 065
  93. KETOPROFEN [Concomitant]
     Active Substance: KETOPROFEN
  94. OXYCODONE [Suspect]
     Active Substance: OXYCODONE
     Indication: Toothache
     Route: 065
  95. OXYCODONE [Suspect]
     Active Substance: OXYCODONE
     Indication: Product used for unknown indication
  96. OXYCODONE [Suspect]
     Active Substance: OXYCODONE
     Indication: Toothache
     Route: 065
  97. OXYCODONE [Suspect]
     Active Substance: OXYCODONE
  98. OXYCODONE [Suspect]
     Active Substance: OXYCODONE
     Route: 065

REACTIONS (10)
  - Toothache [Recovering/Resolving]
  - Gingival pain [Recovering/Resolving]
  - Dry mouth [Unknown]
  - Drug interaction [Unknown]
  - Central pain syndrome [Recovered/Resolved]
  - Hyperaesthesia [Recovered/Resolved]
  - Hyperaesthesia [Recovered/Resolved]
  - Somnolence [Unknown]
  - Drug ineffective [Unknown]
  - Off label use [Unknown]
